FAERS Safety Report 9048706 (Version 1)
Quarter: 2013Q2

REPORT INFORMATION
  Report Type: Spontaneous
  Country: US (occurrence: None)
  Receive Date: 20130130
  Receipt Date: 20130130
  Transmission Date: 20140414
  Serious: Yes (Hospitalization)
  Sender: FDA-Public Use
  Company Number: None

PATIENT
  Age: 59 Year
  Sex: Female
  Weight: 79.38 kg

DRUGS (2)
  1. CARBOPLATIN [Suspect]
     Indication: TONSIL CANCER
     Dosage: 1 AUC
     Dates: start: 20121121, end: 20130124
  2. CETUXIMAB [Suspect]
     Indication: TONSIL CANCER
     Dates: start: 20121121, end: 20130124

REACTIONS (3)
  - Chest discomfort [None]
  - Electrocardiogram QT prolonged [None]
  - Blood calcium decreased [None]
